FAERS Safety Report 5915288-5 (Version None)
Quarter: 2008Q4

REPORT INFORMATION
  Report Type: 
  Country: None (occurrence: None)
  Receive Date: 20081010
  Receipt Date: 20081010
  Transmission Date: 20090506
  Serious: Yes (Hospitalization, Other)
  Sender: FDA-Public Use
  Company Number: US-BAYER-200820026NA

PATIENT
  Age: 53 Year
  Sex: Female
  Weight: 71 kg

DRUGS (56)
  1. SORAFENIB [Suspect]
     Indication: ACUTE MYELOID LEUKAEMIA
     Dosage: TOTAL DAILY DOSE: 800 MG  UNIT DOSE: 200 MG
     Route: 048
     Dates: start: 20080401, end: 20080407
  2. IDARUBICIN HCL [Suspect]
     Indication: ACUTE MYELOID LEUKAEMIA
     Route: 042
     Dates: start: 20080403, end: 20080405
  3. CYTARABINE [Suspect]
     Indication: ACUTE MYELOID LEUKAEMIA
     Route: 042
     Dates: start: 20080403, end: 20080406
  4. ACETAMINOPHEN [Concomitant]
     Route: 048
  5. ACETAMINOPHEN [Concomitant]
  6. ACYCLOVIR SODIUM [Concomitant]
     Dosage: TOTAL DAILY DOSE: 700 MG
     Route: 042
  7. CALCIUM CARBONATE [Concomitant]
     Route: 048
  8. CALCIUM CARBONATE [Concomitant]
  9. CARVEDILOL [Concomitant]
     Dosage: TOTAL DAILY DOSE: 12.50 MG
     Route: 048
  10. CASPOFUNGIN ACETATE [Concomitant]
     Dosage: TOTAL DAILY DOSE: 50 MG
     Route: 042
  11. CIPROFLOXACIN [Concomitant]
     Dosage: TOTAL DAILY DOSE: 400 ML
     Route: 042
  12. DEXTROSE [Concomitant]
  13. DIPHENHYDRAMINE HCL [Concomitant]
     Route: 042
  14. NEUPOGEN [Concomitant]
     Route: 023
  15. FUROSEMIDE [Concomitant]
     Dosage: TOTAL DAILY DOSE: 20 MG
     Route: 048
  16. HUMULIN R [Concomitant]
     Route: 023
  17. IPRATROPIUM BROMIDE [Concomitant]
     Route: 055
  18. LISINOPRIL [Concomitant]
     Dosage: TOTAL DAILY DOSE: 10 MG
     Route: 048
  19. MAGNESIUM OXIDE SUPPLEMENT [Concomitant]
     Dosage: TOTAL DAILY DOSE: 1500 MG
     Route: 048
  20. MAGNESIUM OXIDE SUPPLEMENT [Concomitant]
     Route: 048
  21. MAGNESIUM OXIDE SUPPLEMENT [Concomitant]
     Route: 048
  22. MAGNESIUM SULFATE [Concomitant]
     Route: 042
  23. MAGNESIUM SULFATE [Concomitant]
     Route: 042
  24. MEROPENEM [Concomitant]
     Dosage: TOTAL DAILY DOSE: 2 G
     Route: 042
  25. METHYLPREDNISOLONE SODIUM SUCCINATE [Concomitant]
     Dosage: TOTAL DAILY DOSE: 50 MG
     Route: 042
  26. PANTOPRAZOLE SODIUM [Concomitant]
     Indication: PROPHYLAXIS AGAINST GASTROINTESTINAL ULCER
     Dosage: TOTAL DAILY DOSE: 40 MG
     Route: 048
  27. POTASSIUM SODIUM PHOSPHATES [Concomitant]
     Route: 048
  28. POTASSIUM SODIUM PHOSPHATES [Concomitant]
     Route: 048
  29. POTASSIUM CHLORIDE [Concomitant]
     Route: 042
  30. POTASSIUM CHLORIDE [Concomitant]
     Route: 048
  31. POTASSIUM CHLORIDE [Concomitant]
  32. POTASSIUM CHLORIDE [Concomitant]
  33. POTASSIUM CHLORIDE [Concomitant]
     Route: 048
  34. PROCHLORPERAZINE MALEATE [Concomitant]
     Route: 048
  35. PROPOXYPHENE HYDROCHLORIDE [Concomitant]
     Route: 048
  36. PROPOXYPHENE HYDROCHLORIDE [Concomitant]
     Route: 048
  37. SODIUM PHOSPHATE [Concomitant]
     Route: 048
  38. VANCOMYCIN HYDROCHLORIDE [Concomitant]
     Dosage: TOTAL DAILY DOSE: 1500 MG
     Route: 042
  39. VORICONAZOLE [Concomitant]
     Dosage: TOTAL DAILY DOSE: 400 MG
     Route: 042
  40. ZOLPIDEM TARTRATE [Concomitant]
     Route: 048
  41. TEMAZEPAM [Concomitant]
     Indication: SLEEP DISORDER
  42. ALUM + MAG HYDROX-SIMETHICONE [Concomitant]
     Route: 048
  43. CEFPODOXIME PROXETIL [Concomitant]
     Dosage: TOTAL DAILY DOSE: 400 MG
     Route: 048
  44. DEXTROMETHORPHAN-GUAIFENESIN [Concomitant]
     Route: 048
  45. DIPHENOXYLATE HCL W/ ATROPINE SULFATE [Concomitant]
     Route: 048
  46. LINEZOLID [Concomitant]
     Dosage: TOTAL DAILY DOSE: 1200 MG
     Route: 048
  47. LOPERAMIDE HCL [Concomitant]
     Route: 048
  48. LOPERAMIDE HCL [Concomitant]
     Route: 048
  49. MAGNESIUM HYDROXIDE TAB [Concomitant]
     Route: 048
  50. PREDNISONE TAB [Concomitant]
     Route: 048
  51. PREGABALIN [Concomitant]
     Dosage: TOTAL DAILY DOSE: 100 MG
     Route: 048
  52. PROMETHAZINE [Concomitant]
     Route: 042
  53. SENNOSIDES-DOCUSATE SODIUM [Concomitant]
     Route: 048
  54. SODIUM BICARBONATE [Concomitant]
     Route: 048
  55. TEMAZEPAM [Concomitant]
     Route: 048
  56. VALACYCLOVIR [Concomitant]
     Dosage: TOTAL DAILY DOSE: 500 MG
     Route: 048

REACTIONS (4)
  - ALANINE AMINOTRANSFERASE INCREASED [None]
  - ATRIAL FIBRILLATION [None]
  - CARDIAC FAILURE CONGESTIVE [None]
  - PNEUMONIA [None]
